FAERS Safety Report 4416669-1 (Version None)
Quarter: 2004Q2

REPORT INFORMATION
  Report Type: 
  Country: None (occurrence: None)
  Receive Date: 20040630
  Receipt Date: 20040216
  Transmission Date: 20050107
  Serious: Yes (Life-Threatening, Hospitalization, Disabling)
  Sender: FDA-Public Use
  Company Number: WAES 0402USA01167

PATIENT
  Age: 71 Year
  Sex: Female

DRUGS (5)
  1. HYZAAR [Suspect]
     Indication: HYPERTENSION
     Dosage: 100-25 MG/DAILY/PO
     Route: 048
     Dates: start: 20031101, end: 20031201
  2. NEURONTIN [Concomitant]
  3. PREVACID [Concomitant]
  4. REZULIN [Concomitant]
  5. INSULIN [Concomitant]

REACTIONS (1)
  - BLOOD SODIUM DECREASED [None]
